FAERS Safety Report 13339623 (Version 1)
Quarter: 2017Q1

REPORT INFORMATION
  Report Type: Spontaneous
  Country: KR (occurrence: KR)
  Receive Date: 20170315
  Receipt Date: 20170315
  Transmission Date: 20170428
  Serious: Yes (Other)
  Sender: FDA-Public Use
  Company Number: KR-009507513-1703KOR001143

PATIENT
  Age: 62 Year
  Sex: Female
  Weight: 51.5 kg

DRUGS (13)
  1. EMEND (FOSAPREPITANT DIMEGLUMINE) [Suspect]
     Active Substance: FOSAPREPITANT DIMEGLUMINE
     Dosage: 150 MG, ONCE
     Route: 042
     Dates: start: 20161220, end: 20161220
  2. MAGNESIUM SULFATE. [Concomitant]
     Active Substance: MAGNESIUM SULFATE
     Indication: ELECTROLYTE SUBSTITUTION THERAPY
     Dosage: 10 ML, BID
     Route: 042
     Dates: start: 20161117, end: 20161117
  3. EMEND (FOSAPREPITANT DIMEGLUMINE) [Suspect]
     Active Substance: FOSAPREPITANT DIMEGLUMINE
     Indication: PROPHYLAXIS OF NAUSEA AND VOMITING
     Dosage: 150 MG, ONCE
     Route: 042
     Dates: start: 20161117, end: 20161117
  4. MACPERAN [Concomitant]
     Active Substance: METOCLOPRAMIDE HYDROCHLORIDE
     Indication: PROPHYLAXIS AGAINST GASTROINTESTINAL ULCER
     Dosage: 1 TABLET, TID
     Route: 048
     Dates: start: 20161117, end: 20161121
  5. PILOGEN [Concomitant]
     Indication: DRY MOUTH
     Dosage: 1 TABLET QD
     Route: 048
     Dates: start: 20161108
  6. EMEND (FOSAPREPITANT DIMEGLUMINE) [Suspect]
     Active Substance: FOSAPREPITANT DIMEGLUMINE
     Dosage: 150 MG, ONCE
     Route: 042
     Dates: start: 20161213, end: 20161213
  7. DEXAMETHASONE. [Concomitant]
     Active Substance: DEXAMETHASONE
     Indication: PROPHYLAXIS OF NAUSEA AND VOMITING
     Dosage: 0.5 MG, QD
     Route: 048
     Dates: start: 20161117, end: 20161119
  8. ALOXI [Concomitant]
     Active Substance: PALONOSETRON HYDROCHLORIDE
     Indication: PROPHYLAXIS OF NAUSEA AND VOMITING
     Dosage: 5 ML, ONCE
     Route: 042
     Dates: start: 20161117, end: 20161117
  9. EMEND (FOSAPREPITANT DIMEGLUMINE) [Suspect]
     Active Substance: FOSAPREPITANT DIMEGLUMINE
     Dosage: 150 MG, ONCE
     Route: 042
     Dates: start: 20161206, end: 20161206
  10. CISPLATIN. [Concomitant]
     Active Substance: CISPLATIN
     Indication: GINGIVAL CANCER
     Dosage: 58 MG, ONCE; CYCLE 1
     Route: 042
     Dates: start: 20161117, end: 20161117
  11. DEXAMETHASONE SODIUM PHOSPHATE. [Concomitant]
     Active Substance: DEXAMETHASONE SODIUM PHOSPHATE
     Indication: PROPHYLAXIS OF NAUSEA AND VOMITING
     Dosage: CONCENTRATION: 5 MG/ML; 5 MG, ONCE
     Route: 042
     Dates: start: 20161117, end: 20161117
  12. LASIX [Concomitant]
     Active Substance: FUROSEMIDE
     Indication: PROPHYLAXIS
     Dosage: CONCENTRATION: 20MG/2ML; 20 MG, UNK
     Route: 042
     Dates: start: 20161117, end: 20161117
  13. POTASSIUM CHLORIDE. [Concomitant]
     Active Substance: POTASSIUM CHLORIDE
     Indication: PROPHYLAXIS
     Dosage: 10 ML, BID
     Route: 042
     Dates: start: 20161117, end: 20161117

REACTIONS (5)
  - Constipation [Recovered/Resolved]
  - Cystitis [Recovered/Resolved]
  - Abdominal pain [Unknown]
  - Oral candidiasis [Recovered/Resolved]
  - Cancer pain [Unknown]

NARRATIVE: CASE EVENT DATE: 20161117
